FAERS Safety Report 9734069 (Version 1)
Quarter: 2013Q4

REPORT INFORMATION
  Report Type: Spontaneous
  Country: BR (occurrence: BR)
  Receive Date: 20131205
  Receipt Date: 20131205
  Transmission Date: 20140711
  Serious: Yes (Hospitalization, Other)
  Sender: FDA-Public Use
  Company Number: BR-PFIZER INC-2013347576

PATIENT
  Age: 73 Year
  Sex: Male

DRUGS (7)
  1. ATENOLOL [Suspect]
     Indication: DRESSLER^S SYNDROME
     Dosage: 50 MG, 2X/DAY
     Route: 048
     Dates: start: 2007
  2. CRESTOR [Suspect]
     Indication: BLOOD CHOLESTEROL INCREASED
     Dosage: 20 MG, DAILY
     Route: 048
     Dates: start: 2008
  3. CRESTOR [Suspect]
     Indication: BLOOD TRIGLYCERIDES INCREASED
  4. METFORMIN W/SITAGLIPTIN [Concomitant]
     Indication: DIABETES MELLITUS
     Dosage: 50/850 MG, AT NIGHT
     Route: 048
     Dates: start: 2012
  5. SUSTRATE [Concomitant]
     Indication: DRESSLER^S SYNDROME
     Dosage: 100 MG, 3X/DAY
     Route: 048
     Dates: start: 2007
  6. CITALOR [Concomitant]
     Indication: DRESSLER^S SYNDROME
     Dosage: 20 MG, 1X/DAY
     Route: 048
     Dates: start: 2007
  7. ENALAPRIL [Concomitant]
     Indication: DRESSLER^S SYNDROME
     Dosage: 5 MG, DAILY
     Route: 048
     Dates: start: 2007

REACTIONS (5)
  - Coronary artery occlusion [Recovered/Resolved]
  - Diabetes mellitus [Recovered/Resolved]
  - Blood triglycerides increased [Recovered/Resolved]
  - Blood cholesterol increased [Recovered/Resolved]
  - Off label use [Not Recovered/Not Resolved]
